FAERS Safety Report 6302472-4 (Version None)
Quarter: 2009Q3

REPORT INFORMATION
  Report Type: 
  Country: None (occurrence: None)
  Receive Date: 20090810
  Receipt Date: 20090803
  Transmission Date: 20100115
  Serious: Yes (Other)
  Sender: FDA-Public Use
  Company Number: IN-JNJFOC-20090801200

PATIENT
  Age: 21 Year
  Sex: Female

DRUGS (5)
  1. TOPIRAMATE [Suspect]
     Route: 048
  2. TOPIRAMATE [Suspect]
     Indication: GRAND MAL CONVULSION
     Route: 048
  3. CARBAMAZEPINE [Concomitant]
     Route: 065
  4. CARBAMAZEPINE [Concomitant]
     Indication: GRAND MAL CONVULSION
     Route: 065
  5. CLOBAZAM [Concomitant]
     Indication: GRAND MAL CONVULSION
     Route: 065

REACTIONS (1)
  - EYE DISORDER [None]
